APPROVED DRUG PRODUCT: RASAGILINE MESYLATE
Active Ingredient: RASAGILINE MESYLATE
Strength: EQ 1MG BASE
Dosage Form/Route: TABLET;ORAL
Application: A201970 | Product #002 | TE Code: AB
Applicant: ORBION PHARMACEUTICALS PRIVATE LTD
Approved: Mar 15, 2016 | RLD: No | RS: No | Type: RX